FAERS Safety Report 8177367-4 (Version None)
Quarter: 2012Q1

REPORT INFORMATION
  Report Type: 
  Country: None (occurrence: None)
  Receive Date: 20120126
  Receipt Date: 20111222
  Transmission Date: 20120608
  Serious: No
  Sender: FDA-Public Use
  Company Number: PHEH2011US009801

PATIENT
  Age: 9 Year
  Sex: Female

DRUGS (2)
  1. LAMICTAL [Concomitant]
  2. AFINITOR [Suspect]
     Indication: ASTROCYTOMA
     Dosage: 5 MG DAILY, ORAL
     Route: 048
     Dates: start: 20110111, end: 20111024

REACTIONS (1)
  - BLOOD COUNT ABNORMAL [None]
